FAERS Safety Report 6042941-8 (Version None)
Quarter: 2009Q1

REPORT INFORMATION
  Report Type: 
  Country: None (occurrence: None)
  Receive Date: 20090119
  Receipt Date: 20090115
  Transmission Date: 20090719
  Serious: Yes (Disabling)
  Sender: FDA-Public Use
  Company Number: D0059788A

PATIENT
  Sex: Female
  Weight: 57 kg

DRUGS (1)
  1. VIANI FORTE [Suspect]
     Indication: CHRONIC OBSTRUCTIVE PULMONARY DISEASE
     Route: 055
     Dates: start: 20050201, end: 20070501

REACTIONS (1)
  - SKIN ATROPHY [None]
